FAERS Safety Report 6781615-2 (Version None)
Quarter: 2010Q2

REPORT INFORMATION
  Report Type: 
  Country: None (occurrence: None)
  Receive Date: 20100617
  Receipt Date: 20100617
  Transmission Date: 20101027
  Serious: Yes (Disabling)
  Sender: FDA-Public Use
  Company Number: None

PATIENT
  Age: 81 Year
  Sex: Female
  Weight: 121.3 kg

DRUGS (6)
  1. CLONIDINE [Suspect]
  2. ALLEGRA [Concomitant]
  3. ATACAND [Concomitant]
  4. LYRICA [Concomitant]
  5. LEVAQUIN [Concomitant]
  6. LIPITOR [Concomitant]

REACTIONS (6)
  - ALANINE AMINOTRANSFERASE INCREASED [None]
  - ASPARTATE AMINOTRANSFERASE INCREASED [None]
  - CONFUSIONAL STATE [None]
  - EPIGASTRIC DISCOMFORT [None]
  - HAEMOGLOBIN DECREASED [None]
  - URINARY TRACT INFECTION [None]
